FAERS Safety Report 7546908 (Version 2)
Quarter: 2016Q1

REPORT INFORMATION
  Report Type: Spontaneous
  Country: US (occurrence: US)
  Receive Date: 20100126
  Receipt Date: 20160302
  Transmission Date: 20160526
  Serious: No
  Sender: FDA-Public Use
  Company Number: US-RB-000998-10

PATIENT
  Age: 2 Year
  Sex: Female
  Weight: 13.61 kg

DRUGS (1)
  1. CHILDRENS MUCINEX COUGH [Suspect]
     Active Substance: DEXTROMETHORPHAN HYDROBROMIDE\GUAIFENESIN
     Dosage: 5ML. 1/2 TEASPOON GIVEN,FREQUENCY UNK
     Route: 048
     Dates: start: 20100113

REACTIONS (2)
  - Epistaxis [Unknown]
  - Drug administration error [Unknown]

NARRATIVE: CASE EVENT DATE: 20100113
